FAERS Safety Report 26083483 (Version 2)
Quarter: 2025Q4

REPORT INFORMATION
  Report Type: Spontaneous
  Country: GB (occurrence: GB)
  Receive Date: 20251124
  Receipt Date: 20251127
  Transmission Date: 20260117
  Serious: Yes (Hospitalization)
  Sender: PFIZER
  Company Number: GB-MLMSERVICE-20251112-PI710702-00147-1

PATIENT
  Age: 7 Decade
  Sex: Female

DRUGS (3)
  1. FILGRASTIM [Suspect]
     Active Substance: FILGRASTIM
     Dosage: DAY 3 TO 9 POST-CHEMOTHERAPY
  2. METOCLOPRAMIDE [Concomitant]
     Active Substance: METOCLOPRAMIDE
     Dosage: FREQ:8 H;ON DAY 2-4
  3. DEXAMETHASONE [Concomitant]
     Active Substance: DEXAMETHASONE
     Dosage: FREQ:12 H;ON DAY 2-4
     Route: 048

REACTIONS (1)
  - Aortitis [Recovered/Resolved]
